FAERS Safety Report 10045927 (Version 2)
Quarter: 2014Q1

REPORT INFORMATION
  Report Type: Spontaneous
  Country: US (occurrence: US)
  Receive Date: 20140329
  Receipt Date: 20140329
  Transmission Date: 20141002
  Serious: Yes (Other)
  Sender: FDA-Public Use
  Company Number: US-GE HEALTHCARE MEDICAL DIAGNOSTICS-OSCN-PR-0902S-0078

PATIENT
  Sex: Male
  Weight: 87.53 kg

DRUGS (29)
  1. GADOLINIUM (UNSPECIFIED) [Suspect]
     Indication: PRODUCT USED FOR UNKNOWN INDICATION
     Route: 042
     Dates: start: 20020328, end: 20020328
  2. MAGNEVIST [Suspect]
     Indication: PRODUCT USED FOR UNKNOWN INDICATION
     Route: 042
     Dates: start: 20020328, end: 20020328
  3. SIROLIMUS [Concomitant]
  4. OMNIPAQUE 350 [Concomitant]
     Route: 042
     Dates: start: 20120507, end: 20120507
  5. ISOVUE 370 [Concomitant]
     Route: 042
     Dates: start: 20110901, end: 20110901
  6. ISOVUE 370 [Concomitant]
     Route: 042
     Dates: start: 20110811, end: 20110811
  7. OPTIRAY 350 [Concomitant]
     Route: 042
     Dates: start: 20110729, end: 20110729
  8. VISIPAQUE 270 [Concomitant]
     Route: 042
     Dates: start: 20110718, end: 20110718
  9. EPOGEN [Concomitant]
  10. GLIPIZIDE [Concomitant]
  11. PROGRAF [Concomitant]
  12. PREDNISONE [Concomitant]
  13. WARFARIN [Concomitant]
  14. LANTUS [Concomitant]
  15. JANUVIA [Concomitant]
  16. ROCALTROL [Concomitant]
  17. NORVASC [Concomitant]
  18. FISH OIL [Concomitant]
  19. LIPITOR [Concomitant]
  20. COLCHICINE [Concomitant]
  21. ALLOPURINOL [Concomitant]
  22. PROTONIX [Concomitant]
  23. FUROSEMIDE [Concomitant]
  24. AMLODIPINE BESYLATE [Concomitant]
  25. TOPROL [Concomitant]
  26. COZAAR [Concomitant]
  27. IRON SULFATE [Concomitant]
  28. SYNTHROID [Concomitant]
  29. CELLCEPT [Concomitant]

REACTIONS (1)
  - Nephrogenic systemic fibrosis [Not Recovered/Not Resolved]
